FAERS Safety Report 9417368 (Version 1)
Quarter: 2013Q3

REPORT INFORMATION
  Report Type: Spontaneous
  Country: NL (occurrence: NL)
  Receive Date: 20130719
  Receipt Date: 20130719
  Transmission Date: 20140515
  Serious: Yes (Other)
  Sender: FDA-Public Use
  Company Number: 2013P1011999

PATIENT
  Age: 77 Year
  Sex: Male

DRUGS (9)
  1. LIDOCAINE [Suspect]
     Indication: ENDARTERECTOMY
     Route: 013
  2. UNSPECIFIED ANGIOTENSIN-CONVERTING ENZYME INHIBITOR [Concomitant]
  3. UNSPECIFIED ORAL ANTI-DIABETIC DRUG [Concomitant]
  4. ETOMIDATE [Concomitant]
  5. ROCURONIUM [Concomitant]
  6. FENTANYL [Concomitant]
  7. RAPIFEN [Concomitant]
  8. UNSPECIFIED STATINS [Concomitant]
  9. UNSPECIFED PLATELET AGGREGATION INHIBITOR [Concomitant]

REACTIONS (3)
  - Convulsion [None]
  - Wrong technique in drug usage process [None]
  - Electroencephalogram abnormal [None]
